FAERS Safety Report 7726097-9 (Version None)
Quarter: 2011Q3

REPORT INFORMATION
  Report Type: 
  Country: None (occurrence: None)
  Receive Date: 20110902
  Receipt Date: 20110831
  Transmission Date: 20111222
  Serious: Yes (Death, Hospitalization)
  Sender: FDA-Public Use
  Company Number: AR-ABBOTT-11P-007-0850748-00

PATIENT
  Sex: Male

DRUGS (2)
  1. DARUNAVIR HYDRATE [Suspect]
     Indication: PRODUCT USED FOR UNKNOWN INDICATION
     Dosage: DAILY
     Dates: start: 20090301
  2. RITONAVIR [Suspect]
     Indication: PRODUCT USED FOR UNKNOWN INDICATION
     Dosage: DAILY
     Dates: start: 20090301

REACTIONS (3)
  - ANAL CANCER [None]
  - MULTI-ORGAN FAILURE [None]
  - SEPSIS [None]
